FAERS Safety Report 5563472-5 (Version None)
Quarter: 2007Q4

REPORT INFORMATION
  Report Type: 
  Country: None (occurrence: None)
  Receive Date: 20071217
  Receipt Date: 20070518
  Transmission Date: 20080405
  Serious: No
  Sender: FDA-Public Use
  Company Number: US-ASTRAZENECA-2007UW12487

PATIENT
  Age: 59 Year
  Sex: Female
  Weight: 90.3 kg

DRUGS (5)
  1. CRESTOR [Suspect]
     Route: 048
     Dates: start: 20070401
  2. HYDROCHLOROTHIAZIDE [Concomitant]
  3. ADVAIR DISKUS 100/50 [Concomitant]
  4. SINGULAIR [Concomitant]
  5. FLONASE [Concomitant]

REACTIONS (3)
  - DIZZINESS [None]
  - FALL [None]
  - SKELETAL INJURY [None]
